FAERS Safety Report 23210707 (Version 1)
Quarter: 2023Q4

REPORT INFORMATION
  Report Type: Report from Study
  Country: US (occurrence: US)
  Receive Date: 20231121
  Receipt Date: 20231121
  Transmission Date: 20240109
  Serious: Yes (Death)
  Sender: FDA-Public Use
  Company Number: US-Merck Healthcare KGaA-2023489209

PATIENT

DRUGS (1)
  1. BAVENCIO [Suspect]
     Active Substance: AVELUMAB
     Indication: Product used for unknown indication
     Dosage: 20 MG/ML

REACTIONS (1)
  - Death [Fatal]

NARRATIVE: CASE EVENT DATE: 20230711
